FAERS Safety Report 6249749-9 (Version None)
Quarter: 2009Q2

REPORT INFORMATION
  Report Type: 
  Country: None (occurrence: None)
  Receive Date: 20090625
  Receipt Date: 20090625
  Transmission Date: 20091009
  Serious: Yes (Other)
  Sender: FDA-Public Use
  Company Number: None

PATIENT
  Age: 52 Year
  Sex: Female
  Weight: 74.8435 kg

DRUGS (2)
  1. SAVELLA [Suspect]
     Indication: FIBROMYALGIA
     Dosage: 50 MG TWICE DAILY PO
     Route: 048
     Dates: start: 20090603, end: 20090623
  2. SAVELLA [Suspect]
     Indication: HEADACHE
     Dosage: 50 MG TWICE DAILY PO
     Route: 048
     Dates: start: 20090603, end: 20090623

REACTIONS (17)
  - ASTHENIA [None]
  - BALANCE DISORDER [None]
  - CONSTIPATION [None]
  - DIZZINESS [None]
  - DRY MOUTH [None]
  - HEART RATE INCREASED [None]
  - HOT FLUSH [None]
  - HYPERHIDROSIS [None]
  - INSOMNIA [None]
  - MIGRAINE [None]
  - MUSCULOSKELETAL PAIN [None]
  - NAUSEA [None]
  - OROPHARYNGEAL PAIN [None]
  - PAIN IN JAW [None]
  - PAIN OF SKIN [None]
  - PALPITATIONS [None]
  - SOMNOLENCE [None]
